FAERS Safety Report 8611893-6 (Version None)
Quarter: 2012Q3

REPORT INFORMATION
  Report Type: 
  Country: None (occurrence: None)
  Receive Date: 20120822
  Receipt Date: 20051110
  Transmission Date: 20120928
  Serious: No
  Sender: FDA-Public Use
  Company Number: PE-ROCHE-424147

PATIENT
  Age: 28 Year
  Sex: Female
  Weight: 50 kg

DRUGS (1)
  1. ISOTRETINOIN [Suspect]
     Indication: ACNE
     Dosage: STRENGTH AND FORMULATION REPORTED AS 20 TABS
     Route: 048
     Dates: start: 20050415, end: 20050901

REACTIONS (2)
  - PREGNANCY [None]
  - NO ADVERSE EVENT [None]
